FAERS Safety Report 9097499 (Version 1)
Quarter: 2013Q1

REPORT INFORMATION
  Report Type: Spontaneous
  Country: TW (occurrence: TW)
  Receive Date: 20130212
  Receipt Date: 20130212
  Transmission Date: 20140127
  Serious: Yes (Other)
  Sender: FDA-Public Use
  Company Number: PHHY2013TW004409

PATIENT
  Sex: Female

DRUGS (2)
  1. ZADITEN [Suspect]
     Dosage: UNK
     Route: 047
     Dates: start: 20130106, end: 20130110
  2. STEROIDS NOS [Concomitant]

REACTIONS (1)
  - Ageusia [Not Recovered/Not Resolved]
